FAERS Safety Report 25929918 (Version 1)
Quarter: 2025Q4

REPORT INFORMATION
  Report Type: Spontaneous
  Country: JP (occurrence: JP)
  Receive Date: 20251016
  Receipt Date: 20251016
  Transmission Date: 20260118
  Serious: Yes (Other)
  Sender: REGENERON
  Company Number: JP-BAYER-2025A132738

PATIENT
  Age: 62 Year
  Sex: Male

DRUGS (1)
  1. EYLEA [Suspect]
     Active Substance: AFLIBERCEPT
     Indication: Neovascular age-related macular degeneration
     Dosage: RIGHT EYE, SOLUTION FOR INJECTION, 40 MG/ML
     Route: 031

REACTIONS (5)
  - Blindness unilateral [Unknown]
  - Retinal haemorrhage [Unknown]
  - Cystoid macular oedema [Unknown]
  - Retinal pigment epithelial tear [Unknown]
  - Macular scar [Unknown]
